FAERS Safety Report 8902523 (Version 2)
Quarter: 2012Q4

REPORT INFORMATION
  Report Type: 
  Country: US (occurrence: US)
  Receive Date: 20121112
  Receipt Date: 20121228
  Transmission Date: 20130627
  Serious: Yes (Other)
  Sender: FDA-Public Use
  Company Number: US-GENZYME-FABR-1002841

PATIENT
  Age: 46 Year
  Sex: Male
  Weight: 88.6 kg

DRUGS (3)
  1. FABRAZYME [Suspect]
     Indication: FABRY^S DISEASE
     Dosage: 90 mg, q2w
     Route: 042
     Dates: start: 20110311
  2. BENADRYL [Concomitant]
     Indication: PREMEDICATION
     Dosage: 25 mg, UNK
     Route: 042
  3. COZAAR [Concomitant]
     Indication: PROTEINURIA
     Dosage: 50 mg, UNK

REACTIONS (1)
  - Osteonecrosis [Not Recovered/Not Resolved]
